FAERS Safety Report 18973875 (Version 1)
Quarter: 2021Q1

REPORT INFORMATION
  Report Type: Spontaneous
  Country: GB (occurrence: GB)
  Receive Date: 20210305
  Receipt Date: 20210305
  Transmission Date: 20210420
  Serious: Yes (Other)
  Sender: FDA-Public Use
  Company Number: GB-TEVA-2021-GB-1884036

PATIENT
  Age: 23 Year
  Sex: Female
  Weight: 32 kg

DRUGS (3)
  1. CYCLIZINE [Concomitant]
     Active Substance: CYCLIZINE
     Dosage: 3 DOSAGE FORMS DAILY; AS NEEDED.
     Dates: start: 20210210
  2. TRIMETHOPRIM. [Suspect]
     Active Substance: TRIMETHOPRIM
     Indication: ACNE
     Dosage: 600 MILLIGRAM DAILY;
     Dates: start: 20210201
  3. ADAPALENE. [Concomitant]
     Active Substance: ADAPALENE
     Dosage: 1 DOSAGE FORMS DAILY; APPLY SPARINGLY.
     Dates: start: 20210201

REACTIONS (4)
  - Rash [Unknown]
  - Lethargy [Unknown]
  - Stevens-Johnson syndrome [Recovering/Resolving]
  - Pyrexia [Unknown]

NARRATIVE: CASE EVENT DATE: 20210216
